FAERS Safety Report 5331945-6 (Version None)
Quarter: 2007Q2

REPORT INFORMATION
  Report Type: 
  Country: None (occurrence: None)
  Receive Date: 20070523
  Receipt Date: 20070514
  Transmission Date: 20071010
  Serious: Yes (Death)
  Sender: FDA-Public Use
  Company Number: IE-JNJFOC-20070503188

PATIENT
  Sex: Female

DRUGS (6)
  1. RISPERDAL CONSTA [Suspect]
  2. RISPERDAL CONSTA [Suspect]
     Indication: SCHIZOPHRENIA
  3. CHLORPROMAZINE [Concomitant]
  4. RIVOTRIL [Concomitant]
  5. NICOTINE [Concomitant]
  6. DIANETTE [Concomitant]

REACTIONS (1)
  - MYOCARDIAL INFARCTION [None]
